FAERS Safety Report 18711190 (Version 2)
Quarter: 2021Q1

REPORT INFORMATION
  Report Type: Spontaneous
  Country: JP (occurrence: JP)
  Receive Date: 20210107
  Receipt Date: 20210202
  Transmission Date: 20210419
  Serious: Yes (Hospitalization, Other)
  Sender: FDA-Public Use
  Company Number: JP-ACCORD-213588

PATIENT
  Age: 73 Year
  Sex: Male
  Weight: 91.9 kg

DRUGS (13)
  1. MAGNESIUM OXIDE. [Concomitant]
     Active Substance: MAGNESIUM OXIDE
     Route: 048
  2. DEXAMETHASONE. [Concomitant]
     Active Substance: DEXAMETHASONE
     Indication: PROPHYLAXIS
     Dosage: ON DAY 1, FOLLOWED BY ORAL?DEXAMETHASONE (8.0 MG ON DAYS 2 TO 4)
     Route: 042
  3. DEXAMETHASONE. [Concomitant]
     Active Substance: DEXAMETHASONE
     Indication: PROPHYLAXIS
     Dosage: ON DAYS 2 TO 4
     Route: 048
  4. APREPITANT. [Interacting]
     Active Substance: APREPITANT
     Indication: PROPHYLAXIS
     Dosage: 125 MG ON DAY 1 AND 80 MG ON DAYS 2 AND 3
     Route: 048
  5. ATORVASTATIN [Concomitant]
     Active Substance: ATORVASTATIN
     Route: 048
  6. ASPIRIN. [Concomitant]
     Active Substance: ASPIRIN
     Route: 048
  7. RANITIDINE. [Concomitant]
     Active Substance: RANITIDINE
     Route: 048
  8. AMLODIPINE [Suspect]
     Active Substance: AMLODIPINE BESYLATE
     Indication: HYPERTENSION
     Route: 048
  9. SENNOSIDE A+B [Concomitant]
     Active Substance: SENNOSIDES A AND B
     Dosage: ONCE DAILY
     Route: 048
  10. PALONOSETRON/PALONOSETRON HYDROCHLORIDE [Concomitant]
     Active Substance: PALONOSETRON HYDROCHLORIDE
     Indication: PROPHYLAXIS
     Dosage: ON DAY 1
     Route: 042
  11. CISPLATIN. [Concomitant]
     Active Substance: CISPLATIN
     Indication: SQUAMOUS CELL CARCINOMA OF LUNG
     Dosage: ADMINISTERED?ONCE ONLY ON THE DAY OF ADMISSION
     Route: 042
  12. GEMCITABINE. [Concomitant]
     Active Substance: GEMCITABINE
     Indication: SQUAMOUS CELL CARCINOMA OF LUNG
     Dosage: ADMINISTERED?ONCE ONLY ON THE DAY OF ADMISSION
     Route: 042
  13. CANDESARTAN. [Concomitant]
     Active Substance: CANDESARTAN
     Route: 048

REACTIONS (3)
  - Drug interaction [Unknown]
  - Condition aggravated [Unknown]
  - Atrioventricular block second degree [Recovered/Resolved]
